FAERS Safety Report 8842981 (Version 1)
Quarter: 2012Q4

REPORT INFORMATION
  Report Type: 
  Country: IT (occurrence: IT)
  Receive Date: 20121016
  Receipt Date: 20121016
  Transmission Date: 20130627
  Serious: Yes (Hospitalization)
  Sender: FDA-Public Use
  Company Number: IT-TEVA-363233ISR

PATIENT
  Age: 48 Year
  Sex: Female

DRUGS (5)
  1. DIAZEPAM [Suspect]
     Indication: SUICIDE ATTEMPT
     Dosage: 20 ml Daily;
     Route: 048
     Dates: start: 20121004, end: 20121004
  2. OMEPRAZOLE [Interacting]
     Indication: SUICIDE ATTEMPT
     Dosage: 14 dosage unit
     Route: 048
     Dates: start: 20121004, end: 20121004
  3. POTASSIO CLORURO [Concomitant]
     Dosage: 6 dosage unit
     Route: 048
     Dates: start: 20121004, end: 20121004
  4. ASPARTATO DI POTASSIO EMIDRATO [Concomitant]
     Dosage: 7500 Milligram Daily;
     Route: 048
     Dates: start: 20121004, end: 20121004
  5. L-ASPARTATO DI MAGNESIO [Concomitant]
     Dosage: 7500 Milligram Daily;
     Route: 048
     Dates: start: 20121004, end: 20121004

REACTIONS (6)
  - Bradykinesia [Recovered/Resolved]
  - Bradyphrenia [Recovered/Resolved]
  - Speech disorder [Recovered/Resolved]
  - Tachycardia [Recovered/Resolved]
  - Overdose [Recovered/Resolved]
  - Drug interaction [Recovered/Resolved]
